FAERS Safety Report 19902036 (Version 1)
Quarter: 2021Q3

REPORT INFORMATION
  Report Type: Spontaneous
  Country: NL (occurrence: NL)
  Receive Date: 20210930
  Receipt Date: 20210930
  Transmission Date: 20211014
  Serious: Yes (Death, Hospitalization)
  Sender: FDA-Public Use
  Company Number: NL-TEVA-2021-NL-1958195

PATIENT
  Age: 38 Year
  Sex: Female

DRUGS (28)
  1. PREDNISONE. [Suspect]
     Active Substance: PREDNISONE
     Indication: SYSTEMIC LUPUS ERYTHEMATOSUS
     Route: 065
  2. ASPARAGINASE [Suspect]
     Active Substance: ASPARAGINASE
     Indication: NATURAL KILLER-CELL LEUKAEMIA
     Route: 065
  3. DOXORUBICIN [Suspect]
     Active Substance: DOXORUBICIN
     Indication: NATURAL KILLER-CELL LEUKAEMIA
     Dosage: PART OF CHOP CHEMOTHERAPY
     Route: 065
  4. PREDNISONE. [Suspect]
     Active Substance: PREDNISONE
     Indication: SYSTEMIC LUPUS ERYTHEMATOSUS
     Route: 065
  5. HYDROCORTISONE. [Suspect]
     Active Substance: HYDROCORTISONE
     Indication: SYSTEMIC LUPUS ERYTHEMATOSUS
     Route: 065
  6. AZATHIOPRINE. [Suspect]
     Active Substance: AZATHIOPRINE
     Indication: SYSTEMIC LUPUS ERYTHEMATOSUS
     Route: 065
  7. MYCOPHENOLATE MOFETIL. [Suspect]
     Active Substance: MYCOPHENOLATE MOFETIL
     Indication: SYSTEMIC LUPUS ERYTHEMATOSUS
     Dosage: 1500 MILLIGRAM DAILY;
     Route: 065
  8. PREDNISONE. [Suspect]
     Active Substance: PREDNISONE
     Indication: SYSTEMIC LUPUS ERYTHEMATOSUS
     Route: 048
  9. PREDNISONE. [Suspect]
     Active Substance: PREDNISONE
     Indication: NATURAL KILLER-CELL LEUKAEMIA
  10. METHOTREXATE. [Suspect]
     Active Substance: METHOTREXATE
     Indication: NATURAL KILLER-CELL LEUKAEMIA
     Route: 065
  11. MYCOPHENOLATE MOFETIL. [Suspect]
     Active Substance: MYCOPHENOLATE MOFETIL
     Indication: SYSTEMIC LUPUS ERYTHEMATOSUS
     Dosage: 1000 MILLIGRAM DAILY;
     Route: 065
  12. PREDNISONE. [Suspect]
     Active Substance: PREDNISONE
     Indication: SYSTEMIC LUPUS ERYTHEMATOSUS
     Dosage: FOR SIX MONTHS
     Route: 065
  13. METHYLPREDNISOLONE. [Suspect]
     Active Substance: METHYLPREDNISOLONE
     Indication: SYSTEMIC LUPUS ERYTHEMATOSUS
     Dosage: FOR 3 DAYS
     Route: 042
  14. CYCLOPHOSPHAMIDE. [Suspect]
     Active Substance: CYCLOPHOSPHAMIDE
     Indication: SYSTEMIC LUPUS ERYTHEMATOSUS
     Dosage: PART OF CHOP CHEMOTHERAPY
     Route: 065
  15. HYDROXYCHLOROQUINE [Concomitant]
     Active Substance: HYDROXYCHLOROQUINE
     Indication: SYSTEMIC LUPUS ERYTHEMATOSUS
     Route: 065
  16. AZATHIOPRINE. [Suspect]
     Active Substance: AZATHIOPRINE
     Indication: SYSTEMIC LUPUS ERYTHEMATOSUS
     Route: 065
  17. AZATHIOPRINE. [Suspect]
     Active Substance: AZATHIOPRINE
     Indication: SYSTEMIC LUPUS ERYTHEMATOSUS
     Route: 065
  18. PREDNISONE. [Suspect]
     Active Substance: PREDNISONE
     Indication: SYSTEMIC LUPUS ERYTHEMATOSUS
     Dosage: PART OF CHOP CHEMOTHERAPY
     Route: 065
  19. VINCRISTINE [Suspect]
     Active Substance: VINCRISTINE
     Indication: NATURAL KILLER-CELL LEUKAEMIA
     Dosage: PART OF CHOP CHEMOTHERAPY
     Route: 065
  20. CYCLOPHOSPHAMIDE. [Suspect]
     Active Substance: CYCLOPHOSPHAMIDE
     Indication: SYSTEMIC LUPUS ERYTHEMATOSUS
     Dosage: FOR THREE MONTHS
     Route: 048
  21. CYCLOPHOSPHAMIDE. [Suspect]
     Active Substance: CYCLOPHOSPHAMIDE
     Indication: NATURAL KILLER-CELL LEUKAEMIA
  22. CYCLOPHOSPHAMIDE. [Suspect]
     Active Substance: CYCLOPHOSPHAMIDE
     Indication: TUBEROUS SCLEROSIS COMPLEX
  23. DEXAMETHASONE. [Suspect]
     Active Substance: DEXAMETHASONE
     Indication: NATURAL KILLER-CELL LEUKAEMIA
     Route: 065
  24. PREDNISONE. [Suspect]
     Active Substance: PREDNISONE
     Indication: SYSTEMIC LUPUS ERYTHEMATOSUS
     Dosage: EVERY OTHER DAY
     Route: 065
  25. CYCLOPHOSPHAMIDE. [Suspect]
     Active Substance: CYCLOPHOSPHAMIDE
     Indication: IMMUNE THROMBOCYTOPENIA
     Route: 042
  26. RITUXIMAB. [Suspect]
     Active Substance: RITUXIMAB
     Indication: SYSTEMIC LUPUS ERYTHEMATOSUS
     Route: 042
  27. PREDNISONE. [Suspect]
     Active Substance: PREDNISONE
     Indication: SYSTEMIC LUPUS ERYTHEMATOSUS
     Dosage: FOR SIX MONTHS
     Route: 065
  28. PREDNISONE. [Suspect]
     Active Substance: PREDNISONE
     Indication: SYSTEMIC LUPUS ERYTHEMATOSUS
     Route: 065

REACTIONS (3)
  - Natural killer-cell leukaemia [Fatal]
  - Tuberous sclerosis complex [Unknown]
  - Drug ineffective [Fatal]
